FAERS Safety Report 8486059-3 (Version None)
Quarter: 2012Q3

REPORT INFORMATION
  Report Type: 
  Country: None (occurrence: None)
  Receive Date: 20120703
  Receipt Date: 20120618
  Transmission Date: 20120928
  Serious: Yes (Other)
  Sender: FDA-Public Use
  Company Number: NL-WATSON-2012-10895

PATIENT
  Age: 4 Year
  Sex: Female

DRUGS (2)
  1. VALPROATE SODIUM [Suspect]
     Dosage: 5 MG/KG, DAILY
     Route: 065
  2. VALPROATE SODIUM [Suspect]
     Indication: EPILEPSY
     Dosage: 31 MG/KG, DAILY
     Route: 065

REACTIONS (3)
  - ANXIETY [None]
  - DRUG WITHDRAWAL SYNDROME [None]
  - HALLUCINATION [None]
